FAERS Safety Report 19112519 (Version 4)
Quarter: 2021Q2

REPORT INFORMATION
  Report Type: Report from Study
  Country: None (occurrence: US)
  Receive Date: 20210409
  Receipt Date: 20210416
  Transmission Date: 20210717
  Serious: Yes (Death, Hospitalization, Other)
  Sender: FDA-Public Use
  Company Number: US-ABBVIE-21K-163-3852587-00

PATIENT
  Age: 48 Year
  Sex: Male

DRUGS (17)
  1. DUOPA [Suspect]
     Active Substance: CARBIDOPA\LEVODOPA
     Indication: PARKINSON^S DISEASE
     Dosage: 4.63 MG/ML 20 MG/ML
     Route: 050
     Dates: start: 20181120, end: 20210308
  2. NEUPRO [Concomitant]
     Active Substance: ROTIGOTINE
     Indication: PRODUCT USED FOR UNKNOWN INDICATION
     Dosage: NEUPRO 2 MG/24 HR PATCH
     Route: 048
  3. LEXAPRO [Concomitant]
     Active Substance: ESCITALOPRAM OXALATE
     Indication: PRODUCT USED FOR UNKNOWN INDICATION
     Route: 048
  4. RYTARY [Concomitant]
     Active Substance: CARBIDOPA\LEVODOPA
     Dosage: 61.25?245 MG?2 CAPSULES FIVE TIMES DAILY
     Route: 048
  5. SINEMET [Concomitant]
     Active Substance: CARBIDOPA\LEVODOPA
     Indication: PRODUCT USED FOR UNKNOWN INDICATION
     Dosage: SINEMET CR 25?100 MG
     Route: 048
  6. SINEMET [Concomitant]
     Active Substance: CARBIDOPA\LEVODOPA
     Dosage: SINEMET CR 50?200 MG, EVERY AFTERNOON OR EVENING
     Route: 048
  7. TADALAFIL. [Concomitant]
     Active Substance: TADALAFIL
     Indication: PRODUCT USED FOR UNKNOWN INDICATION
     Route: 048
  8. VITAMIN B COMPLEX [Concomitant]
     Active Substance: CYANOCOBALAMIN\DEXPANTHENOL\NIACINAMIDE\PYRIDOXINE HYDROCHLORIDE\RIBOFLAVIN 5^-PHOSPHATE SODIUM\THIAMINE HYDROCHLORIDE\VITAMIN B COMPLEX
     Indication: PRODUCT USED FOR UNKNOWN INDICATION
     Route: 048
  9. AZILECT [Concomitant]
     Active Substance: RASAGILINE MESYLATE
     Indication: PRODUCT USED FOR UNKNOWN INDICATION
     Route: 048
  10. RYTARY [Concomitant]
     Active Substance: CARBIDOPA\LEVODOPA
     Indication: PRODUCT USED FOR UNKNOWN INDICATION
     Dosage: 23.75?95 MG?2 CAPSULES FIVE TIMES DAILY
     Route: 048
  11. TROSPIUM [Concomitant]
     Active Substance: TROSPIUM
     Indication: PRODUCT USED FOR UNKNOWN INDICATION
     Route: 048
  12. OXYBUTININ ACCORD [Concomitant]
     Active Substance: OXYBUTYNIN
     Indication: PRODUCT USED FOR UNKNOWN INDICATION
     Dosage: OXYBUTININ ER
     Route: 048
  13. MYRBETRIQ [Concomitant]
     Active Substance: MIRABEGRON
     Indication: PRODUCT USED FOR UNKNOWN INDICATION
     Dosage: MYRBETRIQ ER
     Route: 048
  14. DUOPA [Suspect]
     Active Substance: CARBIDOPA\LEVODOPA
  15. PROBIOTIC 10 [Concomitant]
     Active Substance: DIETARY SUPPLEMENT\PROBIOTICS
     Indication: PRODUCT USED FOR UNKNOWN INDICATION
     Dosage: PROBIOTIC 10B CELL
     Route: 048
  16. VITAMIN D3 [Concomitant]
     Active Substance: CHOLECALCIFEROL
     Indication: PRODUCT USED FOR UNKNOWN INDICATION
     Route: 048
  17. MAGNESIUM OXIDE. [Concomitant]
     Active Substance: MAGNESIUM OXIDE
     Indication: PRODUCT USED FOR UNKNOWN INDICATION
     Dosage: 1 TAB TID
     Route: 048

REACTIONS (13)
  - Orthostatic hypotension [Fatal]
  - Dizziness [Fatal]
  - Fall [Recovered/Resolved]
  - Fall [Recovered/Resolved with Sequelae]
  - Hyporeflexia [Unknown]
  - Cardiac arrest [Recovered/Resolved with Sequelae]
  - Unresponsive to stimuli [Unknown]
  - Loss of consciousness [Not Recovered/Not Resolved]
  - Anoxia [Fatal]
  - Coma [Not Recovered/Not Resolved]
  - Areflexia [Unknown]
  - Cardiac arrest [Fatal]
  - Life support [Fatal]

NARRATIVE: CASE EVENT DATE: 20210307
